FAERS Safety Report 10694297 (Version 1)
Quarter: 2015Q1

REPORT INFORMATION
  Report Type: Spontaneous
  Country: FR (occurrence: FR)
  Receive Date: 20150107
  Receipt Date: 20150107
  Transmission Date: 20150721
  Serious: Yes (Hospitalization, Other)
  Sender: FDA-Public Use
  Company Number: FR-AMGEN-FRASP2014102693

PATIENT
  Age: 73 Year
  Sex: Male

DRUGS (9)
  1. METOJECT [Suspect]
     Active Substance: METHOTREXATE SODIUM
     Indication: RHEUMATOID ARTHRITIS
     Dosage: UNK
     Route: 065
     Dates: end: 2010
  2. CORTANCYL [Concomitant]
     Active Substance: PREDNISONE
     Dosage: UNK
  3. BIPROFENID [Concomitant]
     Active Substance: KETOPROFEN
     Dosage: 100 MG, UNK
  4. ZANIDIP [Concomitant]
     Active Substance: LERCANIDIPINE HYDROCHLORIDE
     Dosage: 10 MG, UNK
  5. SPECIAFOLDINE [Concomitant]
     Active Substance: FOLIC ACID
     Dosage: UNK
  6. APROVEL [Concomitant]
     Active Substance: IRBESARTAN
     Dosage: 300 MG, UNK
  7. ENBREL [Suspect]
     Active Substance: ETANERCEPT
     Indication: RHEUMATOID ARTHRITIS
     Dosage: UNK
     Route: 065
     Dates: end: 2010
  8. HUMIRA [Suspect]
     Active Substance: ADALIMUMAB
     Indication: RHEUMATOID ARTHRITIS
     Dosage: 40 MG, EVERY 15 DAYS
     Route: 058
     Dates: start: 201008, end: 20141028
  9. RANITIDINE [Concomitant]
     Active Substance: RANITIDINE\RANITIDINE HYDROCHLORIDE
     Dosage: UNK

REACTIONS (2)
  - Bladder cancer [Not Recovered/Not Resolved]
  - Metastases to spine [Unknown]

NARRATIVE: CASE EVENT DATE: 20141025
